FAERS Safety Report 17955977 (Version 2)
Quarter: 2021Q2

REPORT INFORMATION
  Report Type: Spontaneous
  Country: US (occurrence: US)
  Receive Date: 20200629
  Receipt Date: 20210528
  Transmission Date: 20210717
  Serious: No
  Sender: FDA-Public Use
  Company Number: US-PFIZER INC-2020248354

PATIENT
  Age: 47 Year
  Sex: Male

DRUGS (6)
  1. SKELAXIN [Suspect]
     Active Substance: METAXALONE
     Indication: PARKINSON^S DISEASE
     Dosage: 800 MG, AS NEEDED (TAKE 1 TABLET (800 MG TOTAL) BY MOUTH 3 (THREE) TIMES DAILY AS NEEDED
     Route: 048
  2. GLUCOTROL [Concomitant]
     Active Substance: GLIPIZIDE
     Dosage: 2.5 MG, 2X/DAY (TAKE 0.5 MG TABLETS (2.5 MG TOTAL) BY MOUTH 2 (TWO) TIMES A DAY BEFORE MEALS)
     Route: 048
     Dates: start: 20200505
  3. INSULIN [Concomitant]
     Active Substance: INSULIN NOS
     Dosage: UNK (SLIDING SCALE)
  4. METFORMIN [Concomitant]
     Active Substance: METFORMIN HYDROCHLORIDE
     Dosage: UNK
  5. JANUVIA [Concomitant]
     Active Substance: SITAGLIPTIN PHOSPHATE
     Dosage: UNK
  6. INGREZZA [Concomitant]
     Active Substance: VALBENAZINE
     Indication: PARKINSONISM
     Dosage: UNK

REACTIONS (2)
  - Off label use [Unknown]
  - Blood glucose increased [Unknown]
